FAERS Safety Report 5115682-9 (Version None)
Quarter: 2006Q3

REPORT INFORMATION
  Report Type: 
  Country: None (occurrence: None)
  Receive Date: 20060926
  Receipt Date: 20060926
  Transmission Date: 20061208
  Serious: Yes (Other)
  Sender: FDA-Public Use
  Company Number: None

PATIENT
  Age: 78 Year
  Sex: Male
  Weight: 81.6 kg

DRUGS (26)
  1. SIMVASTATIN [Suspect]
     Dosage: 80MG  PO
     Route: 048
     Dates: start: 20060710, end: 20060710
  2. ADVANTAGE (ACCU-CHEK GLUCOSE) METER [Concomitant]
  3. ROSUVASTATIN [Concomitant]
  4. ACETAMINOPHEN AND HYDROCODONE BITARTRATE [Concomitant]
  5. CEPHALEXIN [Concomitant]
  6. HUMULIN N [Concomitant]
  7. GUAIFENESIN [Concomitant]
  8. GLIPIZIDE [Concomitant]
  9. DOCUSATE/SENNOSIDES [Concomitant]
  10. SODIUM CHLORIDE [Concomitant]
  11. ASPIRIN [Concomitant]
  12. SERTRALINE [Concomitant]
  13. HYDROCHLOROTHIAZIDE/LISINOPRIL [Concomitant]
  14. OMEPRAZOLE [Concomitant]
  15. IPRATROPIUM BROMIDE [Concomitant]
  16. ALBUTEROL [Concomitant]
  17. TRAVOPROST [Concomitant]
  18. CAPSAICIN [Concomitant]
  19. CARVEDILOL [Concomitant]
  20. MILK OF MAGNESIA TAB [Concomitant]
  21. ACETAMINOPHEN [Concomitant]
  22. QUININE SULFATE [Concomitant]
  23. CYANOCOBALAMIN [Concomitant]
  24. TRAZODONE HCL [Concomitant]
  25. LORATADINE [Concomitant]
  26. FLUNISOLIDE [Concomitant]

REACTIONS (1)
  - ABDOMINAL DISCOMFORT [None]
